FAERS Safety Report 10457816 (Version 1)
Quarter: 2014Q3

REPORT INFORMATION
  Report Type: Spontaneous
  Country: US (occurrence: US)
  Receive Date: 20140916
  Receipt Date: 20140916
  Transmission Date: 20150326
  Serious: Yes (Hospitalization)
  Sender: FDA-Public Use
  Company Number: US-GLAXOSMITHKLINE-A1088649A

PATIENT
  Age: 72 Year
  Sex: Female

DRUGS (6)
  1. IBUPROFEN. [Concomitant]
     Active Substance: IBUPROFEN
  2. ADVAIR HFA [Suspect]
     Active Substance: FLUTICASONE PROPIONATE\SALMETEROL XINAFOATE
     Indication: PNEUMONIA
     Dosage: 1MG TWICE PER DAY
     Route: 055
     Dates: start: 1999, end: 201404
  3. CARDIZEM LA [Concomitant]
     Active Substance: DILTIAZEM HYDROCHLORIDE
  4. ALBUTEROL NEBULIZED [Concomitant]
     Active Substance: ALBUTEROL
  5. DYAZIDE [Concomitant]
     Active Substance: HYDROCHLOROTHIAZIDE\TRIAMTERENE
  6. NEXIUM [Concomitant]
     Active Substance: ESOMEPRAZOLE MAGNESIUM

REACTIONS (7)
  - Impaired healing [Recovering/Resolving]
  - Procedural pain [Recovering/Resolving]
  - Post procedural complication [Recovering/Resolving]
  - Drug ineffective [Unknown]
  - Pneumonia [Recovering/Resolving]
  - Cholecystectomy [Recovering/Resolving]
  - Gallbladder disorder [Recovering/Resolving]

NARRATIVE: CASE EVENT DATE: 201109
